FAERS Safety Report 12144423 (Version 2)
Quarter: 2016Q2

REPORT INFORMATION
  Report Type: Spontaneous
  Country: US (occurrence: US)
  Receive Date: 20160304
  Receipt Date: 20160414
  Transmission Date: 20160815
  Serious: No
  Sender: FDA-Public Use
  Company Number: US-PFIZER INC-2016077310

PATIENT
  Age: 72 Year
  Sex: Male
  Weight: 83 kg

DRUGS (12)
  1. FISH OIL [Concomitant]
     Active Substance: FISH OIL
     Indication: MACULAR DEGENERATION
     Dosage: 1200 MG, UNK
  2. VITAMIN B12 [Concomitant]
     Active Substance: CYANOCOBALAMIN
     Indication: MACULAR DEGENERATION
     Dosage: 500 UG, 1X/DAY, AT NIGHT
  3. IRON [Concomitant]
     Active Substance: IRON
     Dosage: 65 MG, UNK
     Dates: start: 20140701, end: 20160101
  4. AMLODIPINE [Concomitant]
     Active Substance: AMLODIPINE BESYLATE
     Indication: BLOOD PRESSURE MEASUREMENT
     Dosage: 5 MG, 1X/DAY, AT NIGHT
  5. ASPIRIN BAYER [Concomitant]
     Active Substance: ASPIRIN
     Indication: BLOOD PRESSURE MEASUREMENT
     Dosage: 81 MG, 1X/DAY
  6. CHANTIX [Suspect]
     Active Substance: VARENICLINE TARTRATE
     Indication: SMOKING CESSATION THERAPY
     Dosage: 1 MG, 2X/DAY
     Route: 048
     Dates: end: 201502
  7. POTASSIUM CHLORIDE. [Concomitant]
     Active Substance: POTASSIUM CHLORIDE
     Dosage: 200 MEQ, UNK
  8. OMEGA 3 [Concomitant]
     Active Substance: OMEGA-3 FATTY ACIDS
     Indication: MACULAR DEGENERATION
     Dosage: 360 MG, UNK
  9. PRAVASTATIN [Concomitant]
     Active Substance: PRAVASTATIN\PRAVASTATIN SODIUM
     Indication: BLOOD CHOLESTEROL
     Dosage: 40 MG, 1X/DAY, AT NIGHT
  10. VITAMIN D3 [Concomitant]
     Active Substance: CHOLECALCIFEROL
     Indication: MACULAR DEGENERATION
     Dosage: 2000 IU, 1X/DAY, AT NIGHT
  11. ATENOLOL. [Concomitant]
     Active Substance: ATENOLOL
     Indication: BLOOD PRESSURE MEASUREMENT
     Dosage: 100-25MG MORNING AND NIGHT
     Dates: start: 201504, end: 201505
  12. ATENOLOL. [Concomitant]
     Active Substance: ATENOLOL
     Dosage: 100-25MG AT NIGHT

REACTIONS (1)
  - Vomiting [Recovered/Resolved]

NARRATIVE: CASE EVENT DATE: 2015
